FAERS Safety Report 8026431 (Version 3)
Quarter: 2012Q4

REPORT INFORMATION
  Report Type: 
  Country: CA (occurrence: CA)
  Receive Date: 20110708
  Receipt Date: 20121105
  Transmission Date: 20130627
  Serious: Yes (Other)
  Sender: FDA-Public Use
  Company Number: PHHY2011CA56965

PATIENT
  Age: 77 Year
  Sex: Female

DRUGS (2)
  1. ACLASTA [Suspect]
     Indication: OSTEOPOROSIS
     Dosage: UNK UKN, UNK
     Route: 042
     Dates: start: 20100624
  2. ACLASTA [Suspect]
     Dosage: UNK UKN, UNK
     Route: 042
     Dates: start: 201108

REACTIONS (6)
  - Autoimmune thyroiditis [Unknown]
  - Hypothyroidism [Unknown]
  - Carcinoid tumour pulmonary [Unknown]
  - Paraneoplastic syndrome [Unknown]
  - Blood calcium increased [Unknown]
  - White blood cells urine positive [Unknown]
